FAERS Safety Report 23113434 (Version 2)
Quarter: 2024Q1

REPORT INFORMATION
  Report Type: Spontaneous
  Country: JP (occurrence: JP)
  Receive Date: 20231027
  Receipt Date: 20240115
  Transmission Date: 20240410
  Serious: Yes (Hospitalization)
  Sender: FDA-Public Use
  Company Number: JP-CHUGAI-2023038285AA

PATIENT
  Age: 61 Year
  Sex: Male
  Weight: 82 kg

DRUGS (6)
  1. TECENTRIQ [Suspect]
     Active Substance: ATEZOLIZUMAB
     Indication: Non-small cell lung cancer
     Dosage: 1200 MILLIGRAM, SINGLE
     Route: 065
     Dates: start: 20230915, end: 20230915
  2. LAFUTIDINE [Concomitant]
     Active Substance: LAFUTIDINE
     Dosage: UNK
     Dates: start: 20230621, end: 20231002
  3. NIFEDIPINE [Concomitant]
     Active Substance: NIFEDIPINE
  4. FEBUXOSTAT [Concomitant]
     Active Substance: FEBUXOSTAT
     Dosage: UNK
     Dates: start: 20230722
  5. VILDAGLIPTIN [Concomitant]
     Active Substance: VILDAGLIPTIN
     Dosage: UNK
     Dates: start: 20230621
  6. AMARYL [Concomitant]
     Active Substance: GLIMEPIRIDE
     Dosage: UNK
     Dates: start: 20230823

REACTIONS (1)
  - Cytokine release syndrome [Recovering/Resolving]

NARRATIVE: CASE EVENT DATE: 20230925
